FAERS Safety Report 5098653-0 (Version None)
Quarter: 2006Q3

REPORT INFORMATION
  Report Type: 
  Country: None (occurrence: None)
  Receive Date: 20060907
  Receipt Date: 20060828
  Transmission Date: 20061208
  Serious: Yes (Other)
  Sender: FDA-Public Use
  Company Number: DE-JNJFOC-20060804458

PATIENT
  Sex: Male
  Weight: 69 kg

DRUGS (1)
  1. VERMOX [Suspect]
     Indication: ENTEROBIASIS
     Route: 048
     Dates: start: 20060814, end: 20060816

REACTIONS (3)
  - HEADACHE [None]
  - MYALGIA [None]
  - ORAL MUCOSAL EXFOLIATION [None]
